FAERS Safety Report 9455894 (Version 3)
Quarter: 2014Q1

REPORT INFORMATION
  Report Type: Spontaneous
  Country: DE (occurrence: DE)
  Receive Date: 20130813
  Receipt Date: 20140204
  Transmission Date: 20141002
  Serious: Yes (Death)
  Sender: FDA-Public Use
  Company Number: DE-NAPPMUNDI-DEU-2013-0012082

PATIENT
  Age: 46 Year
  Sex: Male

DRUGS (2)
  1. MORPHINE SULFATE INJECTABLE [Suspect]
     Indication: BACK PAIN
     Dosage: 10 MG, UNK
     Dates: start: 201102
  2. FENTANYL [Suspect]
     Indication: BACK PAIN
     Dosage: 100 MCG, Q1H
     Route: 062
     Dates: start: 201102

REACTIONS (2)
  - Coma [Fatal]
  - Brain hypoxia [Fatal]
